FAERS Safety Report 6790627-4 (Version None)
Quarter: 2010Q2

REPORT INFORMATION
  Report Type: 
  Country: None (occurrence: None)
  Receive Date: 20100624
  Receipt Date: 20100525
  Transmission Date: 20101027
  Serious: Yes (Other)
  Sender: FDA-Public Use
  Company Number: PR-PFIZER INC-2009201190

PATIENT
  Age: 72 Year
  Sex: Male

DRUGS (2)
  1. LATANOPROST [Suspect]
     Indication: GLAUCOMA
     Route: 047
  2. TRAVOPROST [Suspect]
     Indication: GLAUCOMA
     Route: 047

REACTIONS (1)
  - KERATITIS HERPETIC [None]
